FAERS Safety Report 5209391-5 (Version None)
Quarter: 2006Q4

REPORT INFORMATION
  Report Type: 
  Country: None (occurrence: None)
  Receive Date: 20061101
  Receipt Date: 20060629
  Transmission Date: 20070319
  Serious: No
  Sender: FDA-Public Use
  Company Number: 2006PV016846

PATIENT
  Age: 62 Year
  Sex: Male

DRUGS (5)
  1. SYMLIN [Suspect]
     Indication: DIABETES MELLITUS NON-INSULIN-DEPENDENT
     Dosage: 60 MCG;BID;SC
     Route: 058
     Dates: start: 20060101
  2. GLUCOPHAGE [Concomitant]
  3. LANTUS [Concomitant]
  4. AMARYL [Concomitant]
  5. AVANDIA [Concomitant]

REACTIONS (1)
  - BLOOD GLUCOSE ABNORMAL [None]
